FAERS Safety Report 20130149 (Version 1)
Quarter: 2021Q4

REPORT INFORMATION
  Report Type: Spontaneous
  Country: US (occurrence: None)
  Receive Date: 20211129
  Receipt Date: 20211129
  Transmission Date: 20220303
  Serious: Yes (Other)
  Sender: FDA-Public Use
  Company Number: None

PATIENT
  Age: 35 Year
  Sex: Male
  Weight: 61.69 kg

DRUGS (1)
  1. BUPRENORPHINE\NALOXONE [Suspect]
     Active Substance: BUPRENORPHINE\NALOXONE
     Dosage: OTHER QUANTITY : 8/2MG;?FREQUENCY : TWICE A DAY;?
     Route: 058

REACTIONS (1)
  - Treatment failure [None]

NARRATIVE: CASE EVENT DATE: 20211118
